FAERS Safety Report 14574079 (Version 1)
Quarter: 2018Q1

REPORT INFORMATION
  Report Type: Spontaneous
  Country: CA (occurrence: CA)
  Receive Date: 20180226
  Receipt Date: 20180226
  Transmission Date: 20180509
  Serious: Yes (Disabling)
  Sender: FDA-Public Use
  Company Number: CA-009507513-1802CAN008701

PATIENT
  Sex: Male

DRUGS (13)
  1. CARDIZEM [Concomitant]
     Active Substance: DILTIAZEM HYDROCHLORIDE
  2. EZETROL [Suspect]
     Active Substance: EZETIMIBE
     Indication: PRODUCT USED FOR UNKNOWN INDICATION
     Dosage: 10 ID
     Route: 048
     Dates: end: 20171028
  3. REPATHA [Suspect]
     Active Substance: EVOLOCUMAB
     Indication: TYPE IIA HYPERLIPIDAEMIA
     Dosage: 140 MG/ML
     Dates: start: 20160421
  4. METOPROLOL. [Concomitant]
     Active Substance: METOPROLOL
  5. TECFIDERA [Concomitant]
     Active Substance: DIMETHYL FUMARATE
  6. TAMSULOSIN HYDROCHLORIDE. [Concomitant]
     Active Substance: TAMSULOSIN HYDROCHLORIDE
  7. VITAMIN D [Concomitant]
     Active Substance: CHOLECALCIFEROL
  8. DILTIAZEM. [Concomitant]
     Active Substance: DILTIAZEM
  9. SEMPERA [Concomitant]
     Active Substance: ITRACONAZOLE
  10. RIVASA [Concomitant]
     Active Substance: ASPIRIN
  11. CRESTOR [Concomitant]
     Active Substance: ROSUVASTATIN CALCIUM
  12. LIPITOR [Suspect]
     Active Substance: ATORVASTATIN CALCIUM
     Indication: PRODUCT USED FOR UNKNOWN INDICATION
     Dosage: 40 MG, UNK
     Dates: end: 20171028
  13. BRILINTA [Concomitant]
     Active Substance: TICAGRELOR

REACTIONS (4)
  - Muscle disorder [Recovered/Resolved]
  - Gait inability [Recovered/Resolved]
  - Low density lipoprotein increased [Recovering/Resolving]
  - Intentional product misuse [Unknown]
